FAERS Safety Report 9604770 (Version 3)
Quarter: 2013Q4

REPORT INFORMATION
  Report Type: Spontaneous
  Country: US (occurrence: US)
  Receive Date: 20131008
  Receipt Date: 20131108
  Transmission Date: 20140711
  Serious: Yes (Other)
  Sender: FDA-Public Use
  Company Number: US-PFIZER INC-2013285361

PATIENT
  Age: 54 Year
  Sex: Female

DRUGS (1)
  1. LYRICA [Suspect]
     Dosage: UNK

REACTIONS (14)
  - Fall [Unknown]
  - Balance disorder [Unknown]
  - Confusional state [Unknown]
  - Memory impairment [Unknown]
  - Pain [Unknown]
  - Musculoskeletal stiffness [Unknown]
  - Hyperaesthesia [Unknown]
  - Feeling abnormal [Unknown]
  - Fatigue [Unknown]
  - Anxiety [Unknown]
  - Insomnia [Unknown]
  - Fibromyalgia [Unknown]
  - Oedema [Unknown]
  - Weight increased [Unknown]
